FAERS Safety Report 17416097 (Version 1)
Quarter: 2020Q1

REPORT INFORMATION
  Report Type: Spontaneous
  Country: CN (occurrence: CN)
  Receive Date: 20200213
  Receipt Date: 20200213
  Transmission Date: 20200409
  Serious: Yes (Other)
  Sender: FDA-Public Use
  Company Number: CN-B.I. PHARMACEUTICALS,INC./RIDGEFIELD-2020-BI-007303

PATIENT
  Age: 78 Year
  Sex: Female
  Weight: 61 kg

DRUGS (14)
  1. LEVORNIDAZOLE;SODIUM CHLORIDE [Concomitant]
     Indication: CHOLECYSTITIS CHRONIC
  2. ORNIDAZOLE;SODIUM CHLORIDE [Concomitant]
     Indication: CHOLELITHIASIS
     Route: 042
     Dates: start: 20190428, end: 20190501
  3. SULPERAZON [Suspect]
     Active Substance: CEFOPERAZONE SODIUM\SULBACTAM SODIUM
     Indication: CHOLELITHIASIS
     Route: 042
     Dates: start: 20190502, end: 20190505
  4. SODIUM CHLORIDE. [Concomitant]
     Active Substance: SODIUM CHLORIDE
     Route: 042
     Dates: start: 20190428, end: 20190430
  5. SULPERAZON [Suspect]
     Active Substance: CEFOPERAZONE SODIUM\SULBACTAM SODIUM
     Indication: CHOLECYSTITIS CHRONIC
  6. ENOXAPARIN SODIUM. [Concomitant]
     Active Substance: ENOXAPARIN SODIUM
     Indication: ANTICOAGULANT THERAPY
     Route: 042
     Dates: start: 20190428, end: 20190430
  7. CEFMINOX SODIUM [Concomitant]
     Active Substance: CEFMINOX SODIUM
     Indication: CHOLECYSTITIS CHRONIC
  8. PRADAXA [Suspect]
     Active Substance: DABIGATRAN ETEXILATE MESYLATE
     Indication: ANTICOAGULANT THERAPY
     Route: 048
     Dates: start: 20190430, end: 20190506
  9. SODIUM CHLORIDE. [Concomitant]
     Active Substance: SODIUM CHLORIDE
     Route: 042
     Dates: start: 20190502, end: 20190505
  10. SODIUM CHLORIDE. [Concomitant]
     Active Substance: SODIUM CHLORIDE
     Indication: DRUG THERAPY
     Route: 042
     Dates: start: 20190428, end: 20190501
  11. LEVORNIDAZOLE;SODIUM CHLORIDE [Concomitant]
     Indication: CHOLELITHIASIS
     Route: 042
     Dates: start: 20190502, end: 20190511
  12. PANTOPRAZOLE SODIUM. [Concomitant]
     Active Substance: PANTOPRAZOLE SODIUM
     Indication: ABDOMINAL PAIN UPPER
     Dosage: DOSAGE FORM: POWER-INJECTION
     Route: 042
     Dates: start: 20190428, end: 20190430
  13. ORNIDAZOLE;SODIUM CHLORIDE [Concomitant]
     Indication: CHOLECYSTITIS CHRONIC
  14. CEFMINOX SODIUM [Concomitant]
     Active Substance: CEFMINOX SODIUM
     Indication: CHOLELITHIASIS
     Dosage: DOSAGE FORM: POWER-INJECTION
     Route: 042
     Dates: start: 20190428, end: 20190501

REACTIONS (1)
  - Prothrombin time prolonged [Recovering/Resolving]

NARRATIVE: CASE EVENT DATE: 20190505
